FAERS Safety Report 20385438 (Version 3)
Quarter: 2022Q2

REPORT INFORMATION
  Report Type: Spontaneous
  Country: US (occurrence: US)
  Receive Date: 20220127
  Receipt Date: 20220525
  Transmission Date: 20220721
  Serious: Yes (Hospitalization, Other)
  Sender: FDA-Public Use
  Company Number: US-PFIZER INC-202101843958

PATIENT
  Age: 72 Year
  Sex: Female

DRUGS (11)
  1. IBRANCE [Suspect]
     Active Substance: PALBOCICLIB
     Dosage: 100 MG, CYCLIC (DAILY ON DAYS 1 THROUGH 21 OF EACH 28-DAY CYCLE)
     Route: 048
     Dates: start: 20211209
  2. IBRANCE [Suspect]
     Active Substance: PALBOCICLIB
     Dosage: 75 MG
  3. IBRANCE [Suspect]
     Active Substance: PALBOCICLIB
     Dosage: 75 MG, CYCLIC ( DAILY ON DAYS 1 THROUGH 21 OF EACH 28DAY CYCLE)
     Route: 048
     Dates: start: 20211209
  4. ALEVE [Concomitant]
     Active Substance: NAPROXEN SODIUM
     Dosage: UNK
  5. FLECAINIDE ACETATE [Concomitant]
     Active Substance: FLECAINIDE ACETATE
     Dosage: UNK
  6. LETROZOLE [Concomitant]
     Active Substance: LETROZOLE
     Dosage: UNK
  7. POTASSIUM GLUCONATE [Concomitant]
     Active Substance: POTASSIUM GLUCONATE
     Dosage: UNK
  8. TYLENOL [Concomitant]
     Active Substance: ACETAMINOPHEN
     Dosage: UNK
  9. VITAMIN B12 [Concomitant]
     Active Substance: CYANOCOBALAMIN
     Dosage: UNK
  10. VITAMIN D3 [Concomitant]
     Active Substance: CHOLECALCIFEROL
     Dosage: UNK
  11. ZOLEDRONIC ACID [Concomitant]
     Active Substance: ZOLEDRONIC ACID
     Dosage: UNK

REACTIONS (21)
  - Dehydration [Unknown]
  - Starvation [Unknown]
  - Hypokalaemia [Unknown]
  - Product dose omission issue [Unknown]
  - Vomiting [Unknown]
  - Dyspepsia [Unknown]
  - Dysgeusia [Unknown]
  - White blood cell count decreased [Unknown]
  - Nausea [Unknown]
  - Diarrhoea [Unknown]
  - Decreased appetite [Unknown]
  - Heart rate abnormal [Unknown]
  - Muscle spasms [Unknown]
  - Constipation [Unknown]
  - Mobility decreased [Unknown]
  - Gastroenteritis viral [Recovered/Resolved]
  - Alopecia [Unknown]
  - Feeling abnormal [Unknown]
  - Blood potassium decreased [Recovered/Resolved]
  - Vitamin B12 decreased [Recovered/Resolved]
  - Vitamin D decreased [Recovered/Resolved]

NARRATIVE: CASE EVENT DATE: 20211201
